FAERS Safety Report 21652677 (Version 7)
Quarter: 2023Q2

REPORT INFORMATION
  Report Type: Report from Study
  Country: US (occurrence: US)
  Receive Date: 20221128
  Receipt Date: 20230627
  Transmission Date: 20230721
  Serious: Yes (Death, Life-Threatening, Hospitalization, Disabling, Other)
  Sender: FDA-Public Use
  Company Number: US-JNJFOC-20221148030

PATIENT
  Age: 45 Year
  Sex: Male
  Weight: 53 kg

DRUGS (24)
  1. TECLISTAMAB [Suspect]
     Active Substance: TECLISTAMAB
     Indication: Plasma cell myeloma
     Route: 058
     Dates: start: 20190813
  2. TECLISTAMAB [Suspect]
     Active Substance: TECLISTAMAB
     Route: 058
     Dates: start: 20190820
  3. TECLISTAMAB [Suspect]
     Active Substance: TECLISTAMAB
     Route: 058
     Dates: start: 202205
  4. TECLISTAMAB [Suspect]
     Active Substance: TECLISTAMAB
     Route: 058
  5. TECLISTAMAB [Suspect]
     Active Substance: TECLISTAMAB
     Route: 058
     Dates: start: 202007
  6. TECLISTAMAB [Suspect]
     Active Substance: TECLISTAMAB
     Route: 058
     Dates: start: 20221010
  7. CALCIUM CARBONATE [Concomitant]
     Active Substance: CALCIUM CARBONATE
     Dates: start: 20121003
  8. FERROUS SULFATE [Concomitant]
     Active Substance: FERROUS SULFATE
     Route: 048
     Dates: start: 20221028
  9. HUMAN IMMUNOGLOBULIN G [Concomitant]
     Active Substance: HUMAN IMMUNOGLOBULIN G
     Dates: start: 20210415
  10. HUMAN IMMUNOGLOBULIN G [Concomitant]
     Active Substance: HUMAN IMMUNOGLOBULIN G
     Dates: start: 20221206
  11. LANSOPRAZOLE [Concomitant]
     Active Substance: LANSOPRAZOLE
     Route: 048
     Dates: start: 20220718
  12. METHYLPREDNISOLONE [Concomitant]
     Active Substance: METHYLPREDNISOLONE
     Route: 048
     Dates: start: 20221010
  13. METHYLPREDNISOLONE [Concomitant]
     Active Substance: METHYLPREDNISOLONE
     Dates: start: 20221206
  14. SODIUM CHLORIDE [Concomitant]
     Active Substance: SODIUM CHLORIDE
     Dates: start: 20220419
  15. SULFAMETHOXAZOLE\TRIMETHOPRIM [Concomitant]
     Active Substance: SULFAMETHOXAZOLE\TRIMETHOPRIM
     Dosage: 800/160 MG
  16. VALACYCLOVIR [Concomitant]
     Active Substance: VALACYCLOVIR HYDROCHLORIDE
     Dates: start: 20221010
  17. ACETAMINOPHEN [Concomitant]
     Active Substance: ACETAMINOPHEN
     Route: 048
  18. CHLORHEXIDINE GLUCONATE [Concomitant]
     Active Substance: CHLORHEXIDINE GLUCONATE
     Route: 061
  19. ENOXAPARIN [Concomitant]
     Active Substance: ENOXAPARIN
     Route: 058
  20. GABAPENTIN [Concomitant]
     Active Substance: GABAPENTIN
     Route: 048
  21. POLYVINYL ALCOHOL [Concomitant]
     Active Substance: POLYVINYL ALCOHOL
     Route: 047
  22. PREDNISONE [Concomitant]
     Active Substance: PREDNISONE
     Route: 048
  23. PREDNISONE [Concomitant]
     Active Substance: PREDNISONE
     Dates: start: 20221206
  24. SULFAMETHOXAZOLE\TRIMETHOPRIM [Concomitant]
     Active Substance: SULFAMETHOXAZOLE\TRIMETHOPRIM
     Dosage: MON WED FRI
     Route: 048
     Dates: start: 20230116

REACTIONS (1)
  - Pyramidal tract syndrome [Fatal]

NARRATIVE: CASE EVENT DATE: 20221115
